FAERS Safety Report 18759518 (Version 1)
Quarter: 2021Q1

REPORT INFORMATION
  Report Type: Spontaneous
  Country: CH (occurrence: CH)
  Receive Date: 20210120
  Receipt Date: 20210120
  Transmission Date: 20210419
  Serious: Yes (Other)
  Sender: FDA-Public Use
  Company Number: CH-SUN PHARMACEUTICAL INDUSTRIES LTD-2021RR-276632

PATIENT
  Age: 7 Year
  Sex: Male

DRUGS (4)
  1. CARBOPLATIN. [Suspect]
     Active Substance: CARBOPLATIN
     Indication: RETINOBLASTOMA
     Dosage: 3 CYCLES
     Route: 042
  2. ETOPOSIDE. [Suspect]
     Active Substance: ETOPOSIDE
     Indication: RETINOBLASTOMA
     Dosage: 3 CYCLES
     Route: 042
  3. MELPHALAN. [Suspect]
     Active Substance: MELPHALAN
     Dosage: 6 INTRACAMERAL MELPHALAN INJECTIONS
  4. MELPHALAN. [Suspect]
     Active Substance: MELPHALAN
     Indication: RETINOBLASTOMA
     Dosage: 8 INTRAVITREAL MELPHALAN INJECTIONS

REACTIONS (1)
  - Retinal detachment [Recovered/Resolved]
